FAERS Safety Report 14524406 (Version 3)
Quarter: 2018Q1

REPORT INFORMATION
  Report Type: Spontaneous
  Country: US (occurrence: US)
  Receive Date: 20180213
  Receipt Date: 20180320
  Transmission Date: 20180509
  Serious: No
  Sender: FDA-Public Use
  Company Number: US-PFIZER INC-2018035615

PATIENT
  Age: 64 Year
  Sex: Female

DRUGS (1)
  1. IBRANCE [Suspect]
     Active Substance: PALBOCICLIB
     Dosage: 125 MG, UNK

REACTIONS (8)
  - Confusional state [Unknown]
  - Fatigue [Unknown]
  - Nerve injury [Unknown]
  - Ovarian disorder [Unknown]
  - Carbohydrate antigen 125 increased [Unknown]
  - Insomnia [Unknown]
  - Stress [Unknown]
  - Thinking abnormal [Unknown]
